FAERS Safety Report 12876306 (Version 1)
Quarter: 2016Q4

REPORT INFORMATION
  Report Type: Spontaneous
  Country: US (occurrence: US)
  Receive Date: 20161024
  Receipt Date: 20161024
  Transmission Date: 20170207
  Serious: Yes (Other)
  Sender: FDA-Public Use
  Company Number: US-THROMBOGENICS NV-SPO-2016-2270

PATIENT
  Sex: Female

DRUGS (1)
  1. JETREA [Suspect]
     Active Substance: OCRIPLASMIN
     Indication: PRODUCT USED FOR UNKNOWN INDICATION
     Dosage: 0.125 MG, ONE TIME DOSE
     Route: 031
     Dates: start: 20161013, end: 20161013

REACTIONS (6)
  - Uveitis [Unknown]
  - Photopsia [Unknown]
  - Ocular hyperaemia [Unknown]
  - Episcleritis [Unknown]
  - Subretinal fluid [Unknown]
  - Vision blurred [Unknown]

NARRATIVE: CASE EVENT DATE: 20161013
